FAERS Safety Report 15663208 (Version 3)
Quarter: 2019Q3

REPORT INFORMATION
  Report Type: Spontaneous
  Country: US (occurrence: US)
  Receive Date: 20181128
  Receipt Date: 20190910
  Transmission Date: 20191004
  Serious: No
  Sender: FDA-Public Use
  Company Number: US-SA-2018SA323241

PATIENT
  Age: 38 Year
  Sex: Female

DRUGS (2)
  1. DUPIXENT [Suspect]
     Active Substance: DUPILUMAB
     Indication: ECZEMA
  2. DUPIXENT [Suspect]
     Active Substance: DUPILUMAB
     Indication: DERMATITIS ATOPIC
     Dosage: 300 MG, QOW
     Route: 058
     Dates: start: 201811

REACTIONS (7)
  - Drug ineffective [Not Recovered/Not Resolved]
  - Pruritus [Unknown]
  - Herpes zoster [Recovered/Resolved]
  - Rash [Recovered/Resolved]
  - Feeling hot [Unknown]
  - Muscle strain [Unknown]
  - Accident [Unknown]

NARRATIVE: CASE EVENT DATE: 201811
